FAERS Safety Report 8405043-9 (Version None)
Quarter: 2012Q2

REPORT INFORMATION
  Report Type: 
  Country: None (occurrence: None)
  Receive Date: 20120601
  Receipt Date: 20120104
  Transmission Date: 20120825
  Serious: No
  Sender: FDA-Public Use
  Company Number: US-NOVEN-12US003876

PATIENT
  Sex: Male

DRUGS (2)
  1. DAYTRANA [Suspect]
     Indication: ATTENTION DEFICIT/HYPERACTIVITY DISORDER
     Dosage: 20 MG, UNK
     Route: 062
     Dates: start: 20120101
  2. DAYTRANA [Suspect]
     Dosage: 10 MG, UNK
     Route: 062
     Dates: start: 20111101, end: 20120101

REACTIONS (5)
  - APPLICATION SITE IRRITATION [None]
  - APPLICATION SITE ERYTHEMA [None]
  - PRODUCT QUALITY ISSUE [None]
  - DRUG ADMINISTRATION ERROR [None]
  - WRONG TECHNIQUE IN DRUG USAGE PROCESS [None]
